FAERS Safety Report 19997531 (Version 2)
Quarter: 2021Q4

REPORT INFORMATION
  Report Type: Report from Study
  Country: BR (occurrence: BR)
  Receive Date: 20211026
  Receipt Date: 20211119
  Transmission Date: 20220303
  Serious: Yes (Other)
  Sender: FDA-Public Use
  Company Number: BR-AMRYT PHARMACEUTICALS DAC-AEGR005299

PATIENT

DRUGS (22)
  1. MYALEPT [Suspect]
     Active Substance: METRELEPTIN
     Indication: Lipodystrophy acquired
     Dosage: 2.5 MILLIGRAM, QD
     Route: 058
     Dates: start: 201607, end: 201610
  2. MYALEPT [Suspect]
     Active Substance: METRELEPTIN
     Indication: Acquired lipoatrophic diabetes
     Dosage: 3.75 MILLIGRAM, QD
     Route: 058
     Dates: start: 201611, end: 201703
  3. MYALEPT [Suspect]
     Active Substance: METRELEPTIN
     Dosage: 5 MILLIGRAM, QD
     Route: 058
     Dates: start: 201704
  4. MYALEPT [Suspect]
     Active Substance: METRELEPTIN
     Dosage: 3.75 MILLIGRAM, QD
     Route: 058
     Dates: start: 201709
  5. MYALEPT [Suspect]
     Active Substance: METRELEPTIN
     Dosage: 2.5 MILLIGRAM, QD
     Route: 058
     Dates: start: 201804
  6. MYALEPT [Suspect]
     Active Substance: METRELEPTIN
     Dosage: 3.75 MILLIGRAM, QD
     Route: 058
     Dates: start: 201807
  7. MYALEPT [Suspect]
     Active Substance: METRELEPTIN
     Dosage: 5 MILLIGRAM, QD
     Route: 058
     Dates: start: 201809
  8. MYALEPT [Suspect]
     Active Substance: METRELEPTIN
     Dosage: 2.5 MILLIGRAM, QD
     Route: 058
     Dates: start: 201903
  9. MYALEPT [Suspect]
     Active Substance: METRELEPTIN
     Dosage: 3.75 MILLIGRAM, QD
     Route: 058
     Dates: start: 201905
  10. MYALEPT [Suspect]
     Active Substance: METRELEPTIN
     Dosage: 5 MILLIGRAM, QD
     Route: 058
     Dates: start: 201907
  11. MYALEPT [Suspect]
     Active Substance: METRELEPTIN
     Dosage: 6.25 MILLIGRAM, QD
     Route: 058
     Dates: start: 201911
  12. MYALEPT [Suspect]
     Active Substance: METRELEPTIN
     Dosage: 2.5 MILLIGRAM, QD
     Route: 058
     Dates: start: 202008
  13. MYALEPT [Suspect]
     Active Substance: METRELEPTIN
     Dosage: 3.7 MILLIGRAM, QD
     Route: 058
     Dates: start: 202010, end: 202010
  14. MYALEPT [Suspect]
     Active Substance: METRELEPTIN
     Dosage: 5 MILLIGRAM, QD
     Route: 058
     Dates: start: 202011
  15. MYALEPT [Suspect]
     Active Substance: METRELEPTIN
     Dosage: 6.25 MILLIGRAM, QD
     Route: 058
     Dates: start: 202101
  16. MYALEPT [Suspect]
     Active Substance: METRELEPTIN
     Dosage: 2.5 TO 6.25 MILLIGRAM, QD
     Route: 058
     Dates: start: 202108, end: 202108
  17. MYALEPT [Suspect]
     Active Substance: METRELEPTIN
     Dosage: 6.25 MILLIGRAM, QD
     Route: 058
     Dates: start: 202109
  18. PROTAMINE ZINC INSULIN INJECTION [Concomitant]
     Indication: Type 1 diabetes mellitus
     Dosage: VARIABLE, QD
     Route: 058
     Dates: start: 2013
  19. PROTAMINE ZINC INSULIN INJECTION [Concomitant]
     Indication: Acquired lipoatrophic diabetes
  20. INSULIN HUMAN [Concomitant]
     Active Substance: INSULIN HUMAN
     Indication: Type 1 diabetes mellitus
     Dosage: VARIABLE, QD
     Route: 058
     Dates: start: 2013
  21. INSULIN HUMAN [Concomitant]
     Active Substance: INSULIN HUMAN
     Indication: Acquired lipoatrophic diabetes
  22. PIOGLITAZONE [Concomitant]
     Active Substance: PIOGLITAZONE
     Indication: Acquired lipoatrophic diabetes
     Dosage: 30 MILLIGRAM, QD
     Route: 048
     Dates: start: 2013

REACTIONS (7)
  - Immune thrombocytopenia [Recovering/Resolving]
  - Congenital joint malformation [Recovered/Resolved with Sequelae]
  - Transaminases increased [Not Recovered/Not Resolved]
  - Hyperglycaemia [Unknown]
  - Hypertriglyceridaemia [Unknown]
  - Therapy interrupted [Unknown]
  - Product supply issue [Unknown]

NARRATIVE: CASE EVENT DATE: 20210301
